FAERS Safety Report 12975959 (Version 1)
Quarter: 2016Q4

REPORT INFORMATION
  Report Type: Spontaneous
  Country: US (occurrence: US)
  Receive Date: 20161125
  Receipt Date: 20161125
  Transmission Date: 20170207
  Serious: Yes (Other)
  Sender: FDA-Public Use
  Company Number: GXBR2016US003450

PATIENT
  Sex: Female

DRUGS (1)
  1. PREDNISONE TABLETS USP [Suspect]
     Active Substance: PREDNISONE
     Indication: PAIN
     Dosage: UNK DF, UNK
     Route: 065

REACTIONS (4)
  - Liver injury [Unknown]
  - Blood triglycerides increased [Unknown]
  - Diabetes mellitus [Unknown]
  - Blood cholesterol increased [Unknown]
